FAERS Safety Report 19925458 (Version 1)
Quarter: 2021Q4

REPORT INFORMATION
  Report Type: Spontaneous
  Country: US (occurrence: US)
  Receive Date: 20211006
  Receipt Date: 20211006
  Transmission Date: 20220304
  Serious: No
  Sender: FDA-Public Use
  Company Number: US-009507513-2110USA001070

PATIENT
  Sex: Female

DRUGS (2)
  1. KEYTRUDA [Suspect]
     Active Substance: PEMBROLIZUMAB
     Indication: Endometrial cancer
  2. LENVATINIB MESYLATE [Suspect]
     Active Substance: LENVATINIB MESYLATE
     Indication: Endometrial cancer
     Dosage: 14 MILLIGRAM, QD
     Route: 048
     Dates: start: 20210820

REACTIONS (4)
  - Blood thyroid stimulating hormone decreased [Unknown]
  - Diarrhoea [Unknown]
  - Oral mucosal blistering [Not Recovered/Not Resolved]
  - Fatigue [Unknown]

NARRATIVE: CASE EVENT DATE: 20210101
